FAERS Safety Report 9491988 (Version 1)
Quarter: 2013Q3

REPORT INFORMATION
  Report Type: Spontaneous
  Country: CO (occurrence: None)
  Receive Date: 20130827
  Receipt Date: 20130827
  Transmission Date: 20140515
  Serious: Yes (Hospitalization)
  Sender: FDA-Public Use
  Company Number: 2013P1018808

PATIENT
  Age: 25 Year
  Sex: Female

DRUGS (4)
  1. ALBENDZOLE [Suspect]
  2. ACETOMINOPHNE [Concomitant]
  3. HYOSCINE BUTYLBROMIDE [Concomitant]
  4. BROMIDES [Concomitant]

REACTIONS (1)
  - Granulomatous liver disease [None]
